FAERS Safety Report 7099897-9 (Version None)
Quarter: 2010Q4

REPORT INFORMATION
  Report Type: 
  Country: None (occurrence: None)
  Receive Date: 20101112
  Receipt Date: 20101029
  Transmission Date: 20110411
  Serious: Yes (Other)
  Sender: FDA-Public Use
  Company Number: JP-GENZYME-FLUD-1000357

PATIENT
  Sex: Female
  Weight: 14 kg

DRUGS (5)
  1. FLUDARA [Suspect]
     Indication: APLASIA PURE RED CELL
     Dosage: UNK
     Route: 065
     Dates: start: 20090130, end: 20090202
  2. THYMOGLOBULIN [Suspect]
     Indication: BONE MARROW CONDITIONING REGIMEN
     Dosage: 15.5 MG, QD
     Route: 042
     Dates: start: 20090130, end: 20090202
  3. BUSULFAN [Concomitant]
     Indication: APLASIA PURE RED CELL
     Dosage: UNK
     Dates: start: 20090127, end: 20090128
  4. CYCLOPHOSPHAMIDE [Concomitant]
     Indication: APLASIA PURE RED CELL
     Dosage: UNK
     Dates: start: 20090130, end: 20090202
  5. GRANISETRON HYDROCHLORIDE [Concomitant]
     Indication: PROPHYLAXIS OF NAUSEA AND VOMITING
     Dosage: UNK
     Dates: start: 20090127, end: 20090202

REACTIONS (2)
  - ACUTE GRAFT VERSUS HOST DISEASE IN SKIN [None]
  - PYREXIA [None]
